FAERS Safety Report 7269404-6 (Version None)
Quarter: 2011Q1

REPORT INFORMATION
  Report Type: 
  Country: None (occurrence: None)
  Receive Date: 20110124
  Receipt Date: 20110112
  Transmission Date: 20110831
  Serious: Yes (Other)
  Sender: FDA-Public Use
  Company Number: DKLU1067626

PATIENT
  Age: 17 Year
  Sex: Male

DRUGS (3)
  1. DEPAKOTE [Concomitant]
  2. SABRIL [Suspect]
     Indication: COMPLEX PARTIAL SEIZURES
     Dosage: 1500 MG MILLIGRAM(S), HS, ORAL; 500 MG MILLIGARM(S), ORAL
     Route: 048
     Dates: start: 20100101
  3. VIMPAT [Concomitant]

REACTIONS (7)
  - VISUAL FIELD DEFECT [None]
  - MIDDLE INSOMNIA [None]
  - CONVULSION [None]
  - MIGRAINE [None]
  - GRAND MAL CONVULSION [None]
  - DYSKINESIA [None]
  - VIRAL INFECTION [None]
